FAERS Safety Report 18235490 (Version 2)
Quarter: 2020Q4

REPORT INFORMATION
  Report Type: Report from Study
  Country: US (occurrence: US)
  Receive Date: 20200905
  Receipt Date: 20201005
  Transmission Date: 20210113
  Serious: No
  Sender: FDA-Public Use
  Company Number: US-B.I. PHARMACEUTICALS,INC./RIDGEFIELD-2019-MR-115574

PATIENT
  Age: 85 Year
  Sex: Male

DRUGS (5)
  1. OFEV [Suspect]
     Active Substance: NINTEDANIB
     Indication: IDIOPATHIC PULMONARY FIBROSIS
     Dosage: OFEV DOSE 300MG DAILY
     Route: 048
     Dates: start: 20190910
  2. OFEV [Suspect]
     Active Substance: NINTEDANIB
     Dosage: 100MG BID
     Route: 048
  3. LOPERAMIDE [Suspect]
     Active Substance: LOPERAMIDE
     Indication: PRODUCT USED FOR UNKNOWN INDICATION
  4. OFEV [Suspect]
     Active Substance: NINTEDANIB
  5. OFEV [Suspect]
     Active Substance: NINTEDANIB

REACTIONS (7)
  - Cough [Not Recovered/Not Resolved]
  - Dyspnoea [Unknown]
  - Constipation [Unknown]
  - Diarrhoea [Recovered/Resolved]
  - Diarrhoea [Unknown]
  - Fatigue [Not Recovered/Not Resolved]
  - Abdominal pain upper [Unknown]
